FAERS Safety Report 6917038-2 (Version None)
Quarter: 2010Q3

REPORT INFORMATION
  Report Type: 
  Country: None (occurrence: None)
  Receive Date: 20100810
  Receipt Date: 20100803
  Transmission Date: 20110219
  Serious: Yes (Other)
  Sender: FDA-Public Use
  Company Number: A0873774A

PATIENT
  Age: 17 Year
  Sex: Male

DRUGS (1)
  1. LAMICTAL XR [Suspect]
     Dosage: 225MG PER DAY
     Route: 048

REACTIONS (3)
  - CONVULSION [None]
  - DRUG ADMINISTRATION ERROR [None]
  - DRUG LEVEL DECREASED [None]
